FAERS Safety Report 21190438 (Version 2)
Quarter: 2022Q3

REPORT INFORMATION
  Report Type: Spontaneous
  Country: US (occurrence: US)
  Receive Date: 20220809
  Receipt Date: 20220829
  Transmission Date: 20221026
  Serious: No
  Sender: FDA-Public Use
  Company Number: US-BIOVITRUM-2022US09297

PATIENT
  Age: 24 Year
  Sex: Male

DRUGS (2)
  1. KINERET [Suspect]
     Active Substance: ANAKINRA
     Indication: Muckle-Wells syndrome
     Dates: start: 201801
  2. LOSARTAN [Concomitant]
     Active Substance: LOSARTAN
     Dosage: 60MILLIGRAM

REACTIONS (4)
  - COVID-19 [Recovering/Resolving]
  - Feeling abnormal [Unknown]
  - Visual impairment [Unknown]
  - Off label use [Unknown]

NARRATIVE: CASE EVENT DATE: 20180101
